FAERS Safety Report 24004472 (Version 1)
Quarter: 2024Q2

REPORT INFORMATION
  Report Type: Spontaneous
  Country: US (occurrence: None)
  Receive Date: 20240621
  Receipt Date: 20240621
  Transmission Date: 20240716
  Serious: Yes (Other)
  Sender: FDA-Public Use
  Company Number: None

PATIENT
  Age: 72 Year
  Sex: Female

DRUGS (9)
  1. AMBRISENTAN [Suspect]
     Active Substance: AMBRISENTAN
     Indication: Pulmonary hypertension
     Dosage: FREQUENCY : DAILY;?
     Route: 048
     Dates: start: 20231026
  2. TADALAFIL [Concomitant]
     Active Substance: TADALAFIL
  3. FUROSEMIDE [Concomitant]
     Active Substance: FUROSEMIDE
  4. TRAMADOL [Concomitant]
  5. ALBUTEROL NEB SOLN [Concomitant]
  6. PREGABALIN [Concomitant]
     Active Substance: PREGABALIN
  7. ALLOPURINOL [Concomitant]
     Active Substance: ALLOPURINOL
  8. ATORVASTATIN [Concomitant]
  9. WIXELA INHUB [Concomitant]
     Active Substance: FLUTICASONE PROPIONATE\SALMETEROL XINAFOATE

REACTIONS (3)
  - Treatment noncompliance [None]
  - Cardiac failure congestive [None]
  - Acute coronary syndrome [None]

NARRATIVE: CASE EVENT DATE: 20240528
